FAERS Safety Report 19010678 (Version 2)
Quarter: 2021Q2

REPORT INFORMATION
  Report Type: Spontaneous
  Country: US (occurrence: US)
  Receive Date: 20210315
  Receipt Date: 20210409
  Transmission Date: 20210717
  Serious: Yes (Hospitalization)
  Sender: FDA-Public Use
  Company Number: US-ASTRAZENECA-2021A130931

PATIENT

DRUGS (1)
  1. BYDUREON BCISE [Suspect]
     Active Substance: EXENATIDE
     Route: 065
     Dates: start: 2015

REACTIONS (4)
  - Device leakage [Unknown]
  - COVID-19 [Not Recovered/Not Resolved]
  - Injection site haemorrhage [Unknown]
  - Product use issue [Unknown]
